FAERS Safety Report 9187701 (Version 1)
Quarter: 2013Q1

REPORT INFORMATION
  Report Type: Spontaneous
  Country: US (occurrence: US)
  Receive Date: 20130325
  Receipt Date: 20130325
  Transmission Date: 20140127
  Serious: No
  Sender: FDA-Public Use
  Company Number: US-MYLANLABS-2012S1003401

PATIENT
  Sex: Male

DRUGS (2)
  1. FENTANYL TRANSDERMAL SYSTEM [Suspect]
     Dosage: CHANGED Q36H
     Route: 062
     Dates: end: 201111
  2. FENTANYL TRANSDERMAL SYSTEM [Suspect]
     Dosage: CHANGED Q36HR
     Route: 062
     Dates: start: 201111

REACTIONS (5)
  - Vomiting [Recovered/Resolved]
  - Parosmia [Not Recovered/Not Resolved]
  - Dizziness [Not Recovered/Not Resolved]
  - Nausea [Not Recovered/Not Resolved]
  - Pain [Not Recovered/Not Resolved]
